FAERS Safety Report 8161672-1 (Version None)
Quarter: 2012Q1

REPORT INFORMATION
  Report Type: 
  Country: None (occurrence: None)
  Receive Date: 20120224
  Receipt Date: 20120214
  Transmission Date: 20120608
  Serious: Yes (Hospitalization, Other)
  Sender: FDA-Public Use
  Company Number: CA-JNJFOC-20120208033

PATIENT
  Sex: Male
  Weight: 97.7 kg

DRUGS (9)
  1. REMICADE [Suspect]
     Indication: CROHN'S DISEASE
     Route: 042
     Dates: start: 20070509
  2. REMICADE [Suspect]
     Dosage: 31ST INFUSION
     Route: 042
     Dates: start: 20111221
  3. ASPIRIN [Concomitant]
     Route: 065
  4. RANITIDINE [Concomitant]
     Route: 065
  5. HYDROMORPHONE HCL [Concomitant]
     Route: 065
  6. TRAZODONE HCL [Concomitant]
     Route: 065
  7. ATENOLOL [Concomitant]
     Route: 065
  8. CYMBALTA [Concomitant]
     Route: 065
  9. VARENICLINE TARTRATE [Concomitant]
     Route: 065

REACTIONS (3)
  - HEART RATE IRREGULAR [None]
  - PALPITATIONS [None]
  - NAUSEA [None]
